FAERS Safety Report 11637038 (Version 1)
Quarter: 2015Q4

REPORT INFORMATION
  Report Type: Report from Study
  Country: TW (occurrence: TW)
  Receive Date: 20151016
  Receipt Date: 20151016
  Transmission Date: 20160304
  Serious: Yes (Hospitalization, Disabling, Other)
  Sender: FDA-Public Use
  Company Number: TW-009507513-1510TWN006259

PATIENT
  Age: 37 Year
  Sex: Female

DRUGS (2)
  1. NELARABINE [Concomitant]
     Active Substance: NELARABINE
     Indication: ACUTE LYMPHOCYTIC LEUKAEMIA
     Dosage: TOTAL DAILY DOSE: 2250MG, FREQUENCY: QOD X 2 DOSES
     Route: 042
     Dates: start: 20150909, end: 20150911
  2. PEMBROLIZUMAB. [Suspect]
     Active Substance: PEMBROLIZUMAB
     Indication: ACUTE LYMPHOCYTIC LEUKAEMIA
     Dosage: 50 MG, QD (QD X 1DAY)
     Route: 042
     Dates: start: 20150903, end: 20150904

REACTIONS (2)
  - Hepatitis [Not Recovered/Not Resolved]
  - Polyneuropathy [Not Recovered/Not Resolved]

NARRATIVE: CASE EVENT DATE: 20150910
